FAERS Safety Report 9627931 (Version 4)
Quarter: 2014Q3

REPORT INFORMATION
  Report Type: Report from Study
  Country: GB (occurrence: GB)
  Receive Date: 20131016
  Receipt Date: 20140821
  Transmission Date: 20150326
  Serious: Yes (Hospitalization)
  Sender: FDA-Public Use
  Company Number: GB-B.I. PHARMACEUTICALS,INC./RIDGEFIELD-2013-BI-24160BI

PATIENT
  Age: 64 Year
  Sex: Male

DRUGS (7)
  1. E45 CREAM [Concomitant]
     Indication: DRY SKIN
     Route: 061
     Dates: start: 20130707
  2. DOXLCYCLINE [Concomitant]
     Indication: CHEILITIS
     Dosage: 100 MG
     Route: 048
     Dates: start: 20130806, end: 20130811
  3. BIBW 2992 [Suspect]
     Active Substance: AFATINIB
     Indication: SQUAMOUS CELL CARCINOMA OF LUNG
     Dosage: 20 MG
     Route: 048
     Dates: start: 20130804, end: 20130806
  4. DOMPERIDONE [Concomitant]
     Active Substance: DOMPERIDONE
     Indication: ANTIEMETIC SUPPORTIVE CARE
     Dosage: 10 MG
     Route: 048
     Dates: start: 20130723
  5. PRETREATMENT [Suspect]
     Active Substance: UNSPECIFIED INGREDIENT
     Indication: SQUAMOUS CELL CARCINOMA OF LUNG
     Route: 065
  6. MEGACE [Concomitant]
     Active Substance: MEGESTROL ACETATE
     Indication: APPETITE DISORDER
     Dosage: 160 MG
     Route: 048
     Dates: start: 201303
  7. HYDROCORTISONE. [Concomitant]
     Active Substance: HYDROCORTISONE
     Indication: CHAPPED LIPS
     Dosage: TOTAL DAILY DOSE: 1%
     Route: 061
     Dates: start: 20130716

REACTIONS (4)
  - Diarrhoea [Recovered/Resolved]
  - Stomatitis [Not Recovered/Not Resolved]
  - Nausea [Recovered/Resolved]
  - Vomiting [Recovered/Resolved]

NARRATIVE: CASE EVENT DATE: 20130621
